FAERS Safety Report 5980698-7 (Version None)
Quarter: 2008Q4

REPORT INFORMATION
  Report Type: 
  Country: None (occurrence: None)
  Receive Date: 20081205
  Receipt Date: 20080317
  Transmission Date: 20090506
  Serious: No
  Sender: FDA-Public Use
  Company Number: A0715742A

PATIENT
  Age: 43 Year
  Sex: Male

DRUGS (1)
  1. COMMIT [Suspect]
     Dates: start: 20080313, end: 20080313

REACTIONS (3)
  - NAUSEA [None]
  - SALIVARY HYPERSECRETION [None]
  - THROAT TIGHTNESS [None]
